FAERS Safety Report 16856026 (Version 1)
Quarter: 2019Q3

REPORT INFORMATION
  Report Type: Spontaneous
  Country: US (occurrence: US)
  Receive Date: 20190926
  Receipt Date: 20190926
  Transmission Date: 20191005
  Serious: No
  Sender: FDA-Public Use
  Company Number: US-PFIZER INC-2019375051

PATIENT
  Age: 53 Year
  Sex: Male

DRUGS (5)
  1. LYRICA [Suspect]
     Active Substance: PREGABALIN
     Indication: OCCIPITAL NEURALGIA
     Dosage: 50 MG, 2X/DAY
     Route: 048
  2. ROBAXIN [Concomitant]
     Active Substance: METHOCARBAMOL
     Dosage: 0.5 DF, AS NEEDED (HALF ROBAXIN )
     Dates: start: 20181129
  3. LYRICA [Suspect]
     Active Substance: PREGABALIN
     Indication: CERVICOGENIC HEADACHE
     Dosage: 150 MG, DAILY (50 MG ORAL CAPSULE) 1 CAPSULE IN THE MORNING, 2 CAPSULE IN THE EVENING
     Route: 048
  4. LYRICA [Suspect]
     Active Substance: PREGABALIN
     Indication: LUMBAR RADICULOPATHY
  5. ROBAXIN [Concomitant]
     Active Substance: METHOCARBAMOL
     Dosage: 0.5 DF, AS NEEDED (HALF ROBAXIN AS NEEDED)
     Dates: start: 20190114

REACTIONS (2)
  - Circumstance or information capable of leading to medication error [Unknown]
  - Pain [Unknown]
